FAERS Safety Report 5821847-0 (Version None)
Quarter: 2008Q3

REPORT INFORMATION
  Report Type: 
  Country: None (occurrence: None)
  Receive Date: 20080724
  Receipt Date: 20080715
  Transmission Date: 20090109
  Serious: Yes (Other)
  Sender: FDA-Public Use
  Company Number: JP-PFIZER INC-2008051270

PATIENT
  Sex: Female
  Weight: 37 kg

DRUGS (4)
  1. DETRUSITOL SR [Suspect]
     Indication: HYPERTONIC BLADDER
     Route: 048
     Dates: start: 20070412, end: 20071227
  2. ERYTHROMYCIN [Suspect]
     Indication: BRONCHIECTASIS
     Route: 048
     Dates: start: 20070920, end: 20070928
  3. MUCODYNE [Concomitant]
     Route: 048
     Dates: start: 20070412, end: 20071101
  4. MUCOSAL [Concomitant]
     Route: 048
     Dates: start: 20070412, end: 20071101

REACTIONS (1)
  - HENOCH-SCHONLEIN PURPURA [None]
